FAERS Safety Report 23411237 (Version 2)
Quarter: 2024Q1

REPORT INFORMATION
  Report Type: Spontaneous
  Country: JP (occurrence: JP)
  Receive Date: 20240117
  Receipt Date: 20240312
  Transmission Date: 20240409
  Serious: Yes (Hospitalization, Other)
  Sender: FDA-Public Use
  Company Number: JP-PFIZER INC-PV202400004807

PATIENT
  Age: 77 Year
  Sex: Male
  Weight: 48.3 kg

DRUGS (21)
  1. METRONIDAZOLE [Suspect]
     Active Substance: METRONIDAZOLE
     Indication: Pancreatic fistula
     Dosage: 500 MG, 3X/DAY
     Route: 041
     Dates: start: 20231025, end: 20231102
  2. FLAGYL [Suspect]
     Active Substance: METRONIDAZOLE\METRONIDAZOLE HYDROCHLORIDE
     Indication: Pancreatic fistula
     Dosage: 500 MG, 3X/DAY
     Route: 048
     Dates: start: 20231103, end: 20231116
  3. MOSAPRIDE CITRATE [Concomitant]
     Active Substance: MOSAPRIDE CITRATE
     Dosage: 3 TABLETS A DAY, 3X/DAY, BEFORE EVERY MEAL
     Dates: start: 20231019
  4. CARVEDILOL [Concomitant]
     Active Substance: CARVEDILOL
     Dosage: 0.5 TABLET A DAY, 1X/DAY, AFTER BREAKFAST
     Dates: start: 20231019
  5. INDAPAMIDE [Concomitant]
     Active Substance: INDAPAMIDE
     Dosage: 0.5 TABLET A DAY, 1X/DAY, AFTER BREAKFAST
     Dates: start: 20231019
  6. VILDAGLIPTIN [Concomitant]
     Active Substance: VILDAGLIPTIN
     Dosage: 2 TABLETS A DAY, 2X/DAY, AFTER BREAKFAST AND DINNER
     Dates: start: 20231019
  7. GLIMEPIRIDE [Concomitant]
     Active Substance: GLIMEPIRIDE
     Dosage: 1 TABET A DAY, 1X/DAY, AFTER BREAKFAST
     Dates: start: 20231019
  8. NAFTOPIDIL [Concomitant]
     Active Substance: NAFTOPIDIL
     Dosage: 2 TABLETS/DAY, 1X/DAY, AFTER BREAKFAST
     Dates: start: 20231019
  9. VONOPRAZAN FUMARATE [Concomitant]
     Active Substance: VONOPRAZAN FUMARATE
     Dosage: 1 TABLET/DAY,1X/DAY, AFTER DINNER
     Dates: start: 20231019
  10. MIRABEGRON [Concomitant]
     Active Substance: MIRABEGRON
     Dosage: 1 TABLET/DAY, 1X/DAY, AFTER DINNER
     Dates: start: 20231019
  11. ATORVASTATIN ME [Concomitant]
     Dosage: 1 TABLET/DAY, 1X/DAY, AFTER DINNER
     Dates: start: 20231019
  12. HERBALS [Concomitant]
     Active Substance: HERBALS
     Dosage: 5G/DAY,2X/DAY, BEFORE LUNCH AND DINNER
     Dates: start: 20231019
  13. BIMATOPROST TS [Concomitant]
     Dosage: UNK, 1X/DAY
     Route: 047
     Dates: end: 20231116
  14. LEVOFLOXACIN [Concomitant]
     Active Substance: LEVOFLOXACIN
     Dosage: UNK, 3X/DAY
     Route: 047
     Dates: end: 20231116
  15. ALPHAGAN P [Concomitant]
     Active Substance: BRIMONIDINE TARTRATE
     Dosage: UNK, 2X/DAY
     Route: 047
     Dates: start: 20231116
  16. ASPIRIN [Concomitant]
     Active Substance: ASPIRIN
     Dosage: 1 TABLET/DAY, 1X/DAY, AFTER DINNER
     Dates: start: 20231026, end: 20231116
  17. METFORMIN HYDROCHLORIDE [Concomitant]
     Active Substance: METFORMIN HYDROCHLORIDE
     Dosage: 4 TABLETS/DAY, 2X/DAY, AFTER BREAKFAST AND DINNER
     Dates: start: 20231102, end: 20231116
  18. FEXOFENADINE HYDROCHLORIDE [Concomitant]
     Active Substance: FEXOFENADINE HYDROCHLORIDE
     Dosage: 2 TABLETS/DAY, 2X/DAY, AFTER BREAKFAST AND BEFORE GOING TO BED
     Dates: start: 20231105, end: 20231116
  19. POTASSIUM ASPARTATE [Concomitant]
     Active Substance: POTASSIUM ASPARTATE
     Dosage: 3 TABLETS/DAY, 3X/DAY, AFTER BREAKFAST,LUNCH AND DINNER
     Dates: start: 20231028, end: 20231116
  20. DEXTROMETHORPHAN HYDROBROMIDE [Concomitant]
     Active Substance: DEXTROMETHORPHAN HYDROBROMIDE
     Dosage: 3 TABLETS/DAY, 3X/DAY, AFTER BREAKFAST, LUNCH, DINNER
     Dates: start: 20231107, end: 20231116
  21. SULFAMETHOXAZOLE\TRIMETHOPRIM [Concomitant]
     Active Substance: SULFAMETHOXAZOLE\TRIMETHOPRIM
     Dosage: 4 TABLETS/DAY, 2X/DAY, AFTER BREAKFAST AND DINNER
     Dates: start: 20231109, end: 20231116

REACTIONS (4)
  - Toxic encephalopathy [Recovering/Resolving]
  - Seizure [Unknown]
  - Altered state of consciousness [Recovering/Resolving]
  - Fall [Unknown]

NARRATIVE: CASE EVENT DATE: 20231101
